FAERS Safety Report 8162014-8 (Version None)
Quarter: 2012Q1

REPORT INFORMATION
  Report Type: 
  Country: None (occurrence: None)
  Receive Date: 20120224
  Receipt Date: 20111205
  Transmission Date: 20120608
  Serious: No
  Sender: FDA-Public Use
  Company Number: US-BRISTOL-MYERS SQUIBB COMPANY-16270670

PATIENT

DRUGS (2)
  1. GLUCOPHAGE XR [Suspect]
  2. GLUCOPHAGE [Suspect]
     Dosage: IMMEDIATE RELEASE

REACTIONS (1)
  - MEDICATION RESIDUE [None]
